FAERS Safety Report 5725326-0 (Version None)
Quarter: 2008Q2

REPORT INFORMATION
  Report Type: 
  Country: None (occurrence: None)
  Receive Date: 20080501
  Receipt Date: 20080417
  Transmission Date: 20081010
  Serious: Yes (Hospitalization)
  Sender: FDA-Public Use
  Company Number: US-AMGEN-KDL270303

PATIENT
  Sex: Male
  Weight: 88.7 kg

DRUGS (7)
  1. EPOGEN [Suspect]
     Indication: DIALYSIS
     Route: 042
  2. SENSIPAR [Concomitant]
     Indication: HYPERPARATHYROIDISM SECONDARY
     Route: 048
  3. RENAGEL [Concomitant]
  4. PREDNISONE [Concomitant]
  5. NEXIUM [Concomitant]
  6. NEPHRO-VITE [Concomitant]
  7. METOPROLOL TARTRATE [Concomitant]

REACTIONS (6)
  - EOSINOPHILIA [None]
  - EPISTAXIS [None]
  - HAEMOPTYSIS [None]
  - HYPERTENSIVE EMERGENCY [None]
  - PULMONARY OEDEMA [None]
  - THERAPEUTIC RESPONSE DECREASED [None]
